FAERS Safety Report 26105829 (Version 1)
Quarter: 2025Q4

REPORT INFORMATION
  Report Type: Report from Study
  Country: EU (occurrence: EU)
  Receive Date: 20251201
  Receipt Date: 20251201
  Transmission Date: 20260119
  Serious: Yes (Hospitalization, Other)
  Sender: AMGEN
  Company Number: EU-AMGEN-DEUSL2025122872

PATIENT
  Age: 60 Year
  Sex: Female

DRUGS (2)
  1. VECTIBIX [Suspect]
     Active Substance: PANITUMUMAB
     Indication: Colorectal cancer metastatic
     Dosage: UNK, Q2WK
     Route: 065
     Dates: start: 202311
  2. VECTIBIX [Suspect]
     Active Substance: PANITUMUMAB
     Dosage: UNK, Q2WK
     Route: 065
     Dates: start: 202505

REACTIONS (18)
  - Hepatic haemorrhage [Unknown]
  - Hepatic haematoma [Unknown]
  - Liver injury [Unknown]
  - Pleural effusion [Unknown]
  - Pyrexia [Unknown]
  - Pain [Unknown]
  - Dyspnoea [Unknown]
  - Colorectal cancer metastatic [Unknown]
  - Anaphylactic shock [Unknown]
  - Pustule [Unknown]
  - Eyelid disorder [Unknown]
  - Eye discharge [Unknown]
  - Nail bed inflammation [Unknown]
  - Cystitis [Unknown]
  - Dry skin [Unknown]
  - Skin fissures [Recovered/Resolved]
  - Growth of eyelashes [Not Recovered/Not Resolved]
  - Hair growth abnormal [Not Recovered/Not Resolved]

NARRATIVE: CASE EVENT DATE: 20250501
